FAERS Safety Report 10242212 (Version 1)
Quarter: 2014Q2

REPORT INFORMATION
  Report Type: Spontaneous
  Country: CH (occurrence: CH)
  Receive Date: 20140617
  Receipt Date: 20140617
  Transmission Date: 20141212
  Serious: Yes (Hospitalization)
  Sender: FDA-Public Use
  Company Number: CH-PFIZER INC-2014160530

PATIENT
  Age: 39 Year
  Sex: Female

DRUGS (12)
  1. EFEXOR ER [Suspect]
     Indication: DEPRESSION
     Dosage: 150 MG, DAILY
     Route: 048
     Dates: start: 2005, end: 201403
  2. EFEXOR ER [Suspect]
     Dosage: 75 MG + 37.5 MG, DAILY
     Route: 048
     Dates: start: 201403, end: 201403
  3. EFEXOR ER [Suspect]
     Dosage: 75 MG, DAILY
     Route: 048
     Dates: start: 201403, end: 201403
  4. EFEXOR ER [Suspect]
     Dosage: 37.5 MG, DAILY
     Route: 048
     Dates: start: 201403, end: 20140312
  5. NEXIUM [Concomitant]
     Dosage: 80 MG, DAILY
     Route: 048
  6. CELLCEPT [Concomitant]
     Dosage: 1.5 G, 2X/DAY
     Route: 048
  7. HYDROCHLOROTHIAZIDE [Concomitant]
     Dosage: 25 MG, DAILY
     Route: 048
  8. ULCOGANT [Concomitant]
     Dosage: UNK
  9. CYANOCOBALAMIN [Concomitant]
     Dosage: UNK
  10. ZOLPIDEM [Concomitant]
     Dosage: 20 MG, DAILY
     Route: 048
  11. PREDNISONE [Concomitant]
     Dosage: 5 MG, UNK
     Dates: end: 201406
  12. PREDNISONE [Concomitant]
     Dosage: 20 MG, UNK
     Dates: start: 201406

REACTIONS (14)
  - Drug withdrawal syndrome [Recovered/Resolved]
  - Chest pain [Recovered/Resolved]
  - Dysphonia [Recovered/Resolved]
  - Diarrhoea [Recovered/Resolved]
  - Weight increased [Unknown]
  - Nausea [Unknown]
  - Pain [Unknown]
  - Vomiting [Unknown]
  - Hot flush [Unknown]
  - Feeling abnormal [Unknown]
  - Sensation of foreign body [Unknown]
  - Dyspnoea [Unknown]
  - Back pain [Unknown]
  - Flank pain [Unknown]
